FAERS Safety Report 8464956-2 (Version None)
Quarter: 2012Q2

REPORT INFORMATION
  Report Type: 
  Country: None (occurrence: None)
  Receive Date: 20120323
  Receipt Date: 20110923
  Transmission Date: 20120825
  Serious: Yes (Hospitalization)
  Sender: FDA-Public Use
  Company Number: 163-21880-11093075

PATIENT
  Age: 62 Year
  Sex: Male
  Weight: 77.5651 kg

DRUGS (11)
  1. LEVAQUIN [Concomitant]
  2. LISINOPRIL [Concomitant]
  3. NEURONTIN [Concomitant]
  4. MULTIVITAMIN [Concomitant]
  5. HYDROMORPHONE HCL [Concomitant]
  6. IRON (IRON) [Concomitant]
  7. HYROCODONE (HYDROCODONE) [Concomitant]
  8. REVLIMID [Suspect]
     Indication: MULTIPLE MYELOMA
     Dosage: 25 MG, DAILY X 21 DAYS, PO
     Route: 048
     Dates: start: 20110216
  9. POTASSIUM CHLORIDE [Concomitant]
  10. FEXOFENADINE (FEXOFENADINE) (FEXOFENADINE) [Concomitant]
  11. ZOLPIDEM [Concomitant]

REACTIONS (1)
  - PNEUMONIA [None]
